FAERS Safety Report 7593104-6 (Version None)
Quarter: 2011Q3

REPORT INFORMATION
  Report Type: 
  Country: None (occurrence: None)
  Receive Date: 20110706
  Receipt Date: 20110629
  Transmission Date: 20111222
  Serious: Yes (Death)
  Sender: FDA-Public Use
  Company Number: JP-ROCHE-787473

PATIENT
  Sex: Male
  Weight: 49 kg

DRUGS (32)
  1. CAPECITABINE [Suspect]
     Route: 048
     Dates: start: 20100823, end: 20100905
  2. CAPECITABINE [Suspect]
     Route: 048
     Dates: start: 20110207, end: 20110220
  3. OXALIPLATIN [Suspect]
     Route: 041
     Dates: start: 20100913, end: 20100913
  4. OXALIPLATIN [Suspect]
     Route: 041
     Dates: start: 20101206, end: 20101206
  5. OXALIPLATIN [Suspect]
     Route: 041
     Dates: start: 20101227, end: 20101227
  6. CAPECITABINE [Suspect]
     Route: 048
     Dates: start: 20100531, end: 20100613
  7. CAPECITABINE [Suspect]
     Route: 048
     Dates: start: 20101115, end: 20101128
  8. OXALIPLATIN [Suspect]
     Route: 041
     Dates: start: 20101004, end: 20101004
  9. OXALIPLATIN [Suspect]
     Route: 041
     Dates: start: 20101115, end: 20101115
  10. OXALIPLATIN [Suspect]
     Route: 041
     Dates: start: 20110117, end: 20110117
  11. CAPECITABINE [Suspect]
     Indication: RECTAL CANCER METASTATIC
     Route: 048
     Dates: start: 20100412
  12. OXALIPLATIN [Suspect]
     Route: 041
     Dates: start: 20100507, end: 20100507
  13. OXALIPLATIN [Suspect]
     Route: 041
     Dates: start: 20101025, end: 20101025
  14. CAPECITABINE [Suspect]
     Route: 048
     Dates: start: 20100507, end: 20100520
  15. CAPECITABINE [Suspect]
     Route: 048
     Dates: start: 20100621, end: 20100704
  16. OXALIPLATIN [Suspect]
     Indication: RECTAL CANCER METASTATIC
     Route: 041
     Dates: start: 20100412, end: 20100412
  17. OXALIPLATIN [Suspect]
     Route: 041
     Dates: start: 20100621, end: 20100621
  18. CAPECITABINE [Suspect]
     Route: 048
     Dates: start: 20100802, end: 20100815
  19. CAPECITABINE [Suspect]
     Route: 048
     Dates: start: 20101227, end: 20110109
  20. OXALIPLATIN [Suspect]
     Route: 041
     Dates: start: 20100802, end: 20100802
  21. CAPECITABINE [Suspect]
     Route: 048
     Dates: start: 20100712, end: 20100725
  22. CAPECITABINE [Suspect]
     Route: 048
     Dates: start: 20100913, end: 20100926
  23. CAPECITABINE [Suspect]
     Route: 048
     Dates: start: 20101004, end: 20101017
  24. CAPECITABINE [Suspect]
     Route: 048
     Dates: start: 20101206, end: 20101219
  25. OXALIPLATIN [Suspect]
     Route: 041
     Dates: start: 20100531, end: 20100531
  26. OXALIPLATIN [Suspect]
     Route: 041
     Dates: start: 20100712, end: 20100712
  27. OXALIPLATIN [Suspect]
     Route: 041
     Dates: start: 20110207, end: 20110207
  28. OXALIPLATIN [Suspect]
     Route: 041
     Dates: start: 20110228, end: 20110228
  29. CAPECITABINE [Suspect]
     Route: 048
     Dates: start: 20101025, end: 20101107
  30. CAPECITABINE [Suspect]
     Route: 048
     Dates: start: 20110117, end: 20110130
  31. CAPECITABINE [Suspect]
     Route: 048
     Dates: start: 20110228, end: 20110313
  32. OXALIPLATIN [Suspect]
     Route: 041
     Dates: start: 20100823, end: 20100823

REACTIONS (3)
  - INTERSTITIAL LUNG DISEASE [None]
  - NEUROPATHY PERIPHERAL [None]
  - PALMAR-PLANTAR ERYTHRODYSAESTHESIA SYNDROME [None]
